FAERS Safety Report 12687191 (Version 1)
Quarter: 2016Q3

REPORT INFORMATION
  Report Type: Spontaneous
  Country: US (occurrence: US)
  Receive Date: 20160826
  Receipt Date: 20160826
  Transmission Date: 20161109
  Serious: No
  Sender: FDA-Public Use
  Company Number: US-JNJFOC-20160820342

PATIENT
  Age: 73 Year
  Sex: Female
  Weight: 90.72 kg

DRUGS (2)
  1. CETIRIZINE HYDROCHLORIDE. [Suspect]
     Active Substance: CETIRIZINE HYDROCHLORIDE
     Indication: HYPERSENSITIVITY
     Route: 048
  2. CETIRIZINE HYDROCHLORIDE. [Suspect]
     Active Substance: CETIRIZINE HYDROCHLORIDE
     Route: 048

REACTIONS (3)
  - Off label use [Unknown]
  - Product use issue [Unknown]
  - Drug administration error [Unknown]
